FAERS Safety Report 25883873 (Version 2)
Quarter: 2025Q4

REPORT INFORMATION
  Report Type: Spontaneous
  Country: GB (occurrence: GB)
  Receive Date: 20251006
  Receipt Date: 20251010
  Transmission Date: 20260118
  Serious: Yes (Life-Threatening, Hospitalization, Disabling)
  Sender: MACLEODS
  Company Number: GB-MACLEODS PHARMA-MAC2025055570

PATIENT

DRUGS (5)
  1. OLANZAPINE [Suspect]
     Active Substance: OLANZAPINE
     Indication: Schizophrenia
     Dosage: 5 MG TWICE DAILY
     Route: 048
     Dates: start: 2018
  2. OLANZAPINE [Suspect]
     Active Substance: OLANZAPINE
     Route: 048
  3. OLANZAPINE [Suspect]
     Active Substance: OLANZAPINE
     Dosage: DOSE WAS FURTHER ESCALATED TO 20 MG APPROXIMATELY 15 DAYS BEFORE HOSPITAL ADMISSION
     Route: 048
  4. OLANZAPINE [Suspect]
     Active Substance: OLANZAPINE
     Route: 048
     Dates: start: 2018
  5. LURASIDONE [Concomitant]
     Active Substance: LURASIDONE
     Indication: Schizophrenia
     Dosage: NIGHTLY, INITIATED 1 MONTH PRIOR
     Route: 048

REACTIONS (5)
  - Inappropriate antidiuretic hormone secretion [Recovered/Resolved]
  - Peroneal nerve injury [Recovered/Resolved]
  - Peroneal nerve palsy [Recovering/Resolving]
  - Generalised tonic-clonic seizure [Recovered/Resolved]
  - Rhabdomyolysis [Recovered/Resolved]
